FAERS Safety Report 19887025 (Version 1)
Quarter: 2021Q3

REPORT INFORMATION
  Report Type: Spontaneous
  Country: DE (occurrence: DE)
  Receive Date: 20210928
  Receipt Date: 20210928
  Transmission Date: 20211014
  Serious: Yes (Other)
  Sender: FDA-Public Use
  Company Number: DE-LEO PHARMA-338708

PATIENT
  Age: 12 Year
  Sex: Male

DRUGS (3)
  1. DAPSONE COX [Suspect]
     Active Substance: DAPSONE
     Indication: PYODERMA GANGRENOSUM
     Dosage: 50 MG, QD (1/DAY)
     Route: 065
  2. TACROLIMUS. [Suspect]
     Active Substance: TACROLIMUS
     Indication: PYODERMA GANGRENOSUM
     Route: 065
  3. DAPSONE COX [Suspect]
     Active Substance: DAPSONE
     Indication: PYODERMA GANGRENOSUM
     Dosage: 75 MG, QD (1/DAY)
     Route: 065

REACTIONS (5)
  - Drug effective for unapproved indication [Unknown]
  - Methaemoglobinaemia [Unknown]
  - Cushing^s syndrome [Unknown]
  - Product use in unapproved indication [Unknown]
  - Impaired healing [Unknown]
